FAERS Safety Report 8923200 (Version 2)
Quarter: 2013Q1

REPORT INFORMATION
  Report Type: Report from Study
  Country: DE (occurrence: DE)
  Receive Date: 20121124
  Receipt Date: 20130129
  Transmission Date: 20140127
  Serious: Yes (Other)
  Sender: FDA-Public Use
  Company Number: PHHY2012DE102220

PATIENT
  Sex: Female

DRUGS (9)
  1. FTY 720 [Suspect]
     Indication: MULTIPLE SCLEROSIS
     Dosage: 0.5 MG, QD
     Route: 048
     Dates: start: 20111110
  2. BACLOFEN [Concomitant]
     Dosage: 25 MG, BID
     Dates: start: 20110523
  3. CITALOPRAM [Concomitant]
     Dosage: 20 MG, QD
     Dates: start: 20110523
  4. LORAZEPAN [Concomitant]
     Dosage: 1 MG, UNK
     Dates: start: 20110523
  5. AMITRIPTYLIN BETA [Concomitant]
     Dosage: 25 MG, UNK
     Dates: start: 20110523
  6. NEUPRO [Concomitant]
     Dosage: 3 MG, UNK
     Dates: start: 20111123
  7. TRAMADOL AXCOUNT [Concomitant]
     Dosage: 100 MG, UNK
     Dates: start: 20120213, end: 20120509
  8. GABAPENTIN [Concomitant]
     Dosage: 300 MG, UNK
     Dates: start: 20120601
  9. MAGNESIUM VERLA                    /00648601/ [Concomitant]
     Dates: start: 20120711

REACTIONS (2)
  - Circulatory collapse [Recovered/Resolved]
  - Cough [Not Recovered/Not Resolved]
